FAERS Safety Report 9295704 (Version 3)
Quarter: 2013Q3

REPORT INFORMATION
  Report Type: Report from Study
  Country: BR (occurrence: BR)
  Receive Date: 20130517
  Receipt Date: 20130702
  Transmission Date: 20140515
  Serious: Yes (Other)
  Sender: FDA-Public Use
  Company Number: BR-ROCHE-1224947

PATIENT
  Sex: Male

DRUGS (8)
  1. MABTHERA [Suspect]
     Indication: RHEUMATOID ARTHRITIS
     Route: 065
     Dates: start: 20121016
  2. MYCOPHENOLATE MOFETIL [Concomitant]
  3. PREDSIM [Concomitant]
  4. CHLOROQUINE [Concomitant]
  5. NEXIUM [Concomitant]
  6. PANTOPRAZOLE [Concomitant]
  7. LAMOTRIGINE [Concomitant]
  8. DEPAKOTE [Concomitant]

REACTIONS (4)
  - Skin infection [Recovering/Resolving]
  - Neoplasm skin [Recovering/Resolving]
  - Neutrophil count decreased [Recovered/Resolved]
  - Immunodeficiency [Recovered/Resolved]
